FAERS Safety Report 5677299-7 (Version None)
Quarter: 2008Q1

REPORT INFORMATION
  Report Type: 
  Country: None (occurrence: None)
  Receive Date: 20080320
  Receipt Date: 20080320
  Transmission Date: 20080703
  Serious: Yes (Other)
  Sender: FDA-Public Use
  Company Number: None

PATIENT
  Sex: Male
  Weight: 79.1 kg

DRUGS (2)
  1. SPRYCEL [Suspect]
     Dosage: 2900 MG
     Dates: start: 20080219, end: 20080310
  2. NEUTRA-PHOS [Concomitant]

REACTIONS (5)
  - BLOOD PHOSPHORUS DECREASED [None]
  - COUGH [None]
  - DIARRHOEA [None]
  - INFLUENZA LIKE ILLNESS [None]
  - VOMITING [None]
